FAERS Safety Report 9298806 (Version 1)
Quarter: 2013Q2

REPORT INFORMATION
  Report Type: Spontaneous
  Country: GB (occurrence: GB)
  Receive Date: 20130520
  Receipt Date: 20130520
  Transmission Date: 20140414
  Serious: Yes (Death, Other)
  Sender: FDA-Public Use
  Company Number: GB-NAPPMUNDI-GBR-2013-0014008

PATIENT
  Sex: Female

DRUGS (3)
  1. MST CONTINUS TABLETS 30 MG [Suspect]
     Indication: DRUG DIVERSION
     Dosage: 30 MG, UNK
     Route: 048
  2. ORAMORPH [Suspect]
     Indication: DRUG DIVERSION
  3. DIAZEPAM [Suspect]
     Indication: DRUG DIVERSION

REACTIONS (2)
  - Death [Fatal]
  - Drug diversion [Fatal]
